FAERS Safety Report 10252120 (Version 1)
Quarter: 2014Q2

REPORT INFORMATION
  Report Type: Spontaneous
  Country: BR (occurrence: BR)
  Receive Date: 20140623
  Receipt Date: 20140623
  Transmission Date: 20141212
  Serious: Yes (Other)
  Sender: FDA-Public Use
  Company Number: BR-JNJFOC-20140608440

PATIENT
  Sex: Female

DRUGS (6)
  1. EVRA [Suspect]
     Indication: ACNE
     Route: 062
     Dates: end: 201402
  2. EVRA [Suspect]
     Indication: ACNE
     Route: 062
  3. EVRA [Suspect]
     Indication: SKIN DISORDER
     Route: 062
     Dates: end: 201402
  4. EVRA [Suspect]
     Indication: SKIN DISORDER
     Route: 062
  5. EVRA [Suspect]
     Indication: CONTRACEPTION
     Route: 062
  6. EVRA [Suspect]
     Indication: CONTRACEPTION
     Route: 062
     Dates: end: 201402

REACTIONS (7)
  - Depression [Not Recovered/Not Resolved]
  - Amnesia [Not Recovered/Not Resolved]
  - Loss of libido [Not Recovered/Not Resolved]
  - Blood testosterone decreased [Unknown]
  - Progesterone decreased [Unknown]
  - Off label use [Unknown]
  - Maternal exposure before pregnancy [Recovered/Resolved]
